FAERS Safety Report 8811120 (Version 1)
Quarter: 2012Q4

REPORT INFORMATION
  Report Type: Spontaneous
  Country: US (occurrence: None)
  Receive Date: 20120925
  Receipt Date: 20120925
  Transmission Date: 20130627
  Serious: Yes (Other)
  Sender: FDA-Public Use
  Company Number: None

PATIENT
  Age: 62 Year
  Sex: Female
  Weight: 68.04 kg

DRUGS (1)
  1. GABAPENTIN [Suspect]
     Indication: NEUROPATHY
     Dosage: 300mg tid po
     Route: 048
     Dates: start: 20120829, end: 20120831

REACTIONS (4)
  - Speech disorder [None]
  - Aphasia [None]
  - Dizziness [None]
  - Product quality issue [None]
